FAERS Safety Report 9144208 (Version 1)
Quarter: 2013Q1

REPORT INFORMATION
  Report Type: Spontaneous
  Country: VE (occurrence: VE)
  Receive Date: 20130306
  Receipt Date: 20130306
  Transmission Date: 20140127
  Serious: Yes (Other)
  Sender: FDA-Public Use
  Company Number: VE-ELI_LILLY_AND_COMPANY-VE201211006263

PATIENT
  Age: 35 Year
  Sex: Female

DRUGS (3)
  1. HUMALOG 25% LISPRO, 75% NPL [Suspect]
     Indication: GESTATIONAL DIABETES
     Dosage: 10 IU, BID
     Route: 058
     Dates: start: 20121115, end: 20121227
  2. AMLODIPINE [Concomitant]
     Dosage: UNK
     Dates: end: 20121227
  3. VITAMINS [Concomitant]
     Dosage: UNK
     Dates: end: 20121227

REACTIONS (3)
  - Amniorrhoea [Recovered/Resolved]
  - Exposure during pregnancy [Recovered/Resolved]
  - Wound infection [Recovered/Resolved]
